FAERS Safety Report 23139065 (Version 2)
Quarter: 2023Q4

REPORT INFORMATION
  Report Type: Report from Study
  Country: CA (occurrence: CA)
  Receive Date: 20231102
  Receipt Date: 20231110
  Transmission Date: 20240109
  Serious: Yes (Other)
  Sender: FDA-Public Use
  Company Number: CA-ALNYLAM PHARMACEUTICALS, INC.-ALN-2023-005779

PATIENT

DRUGS (6)
  1. ONPATTRO [Suspect]
     Active Substance: PATISIRAN SODIUM
     Indication: Hereditary neuropathic amyloidosis
     Dosage: 0.3 MILLIGRAM/KILOGRAM, Q3W
     Route: 042
     Dates: start: 20230310
  2. ONPATTRO [Suspect]
     Active Substance: PATISIRAN SODIUM
     Dosage: 28.5 MILLIGRAM, Q3W
     Route: 042
     Dates: start: 20231026
  3. ACETAMINOPHEN [Concomitant]
     Active Substance: ACETAMINOPHEN
     Indication: Premedication
     Dosage: 500 MILLIGRAM
     Route: 048
     Dates: start: 20230310, end: 20231026
  4. DIPHENHYDRAMINE [Concomitant]
     Active Substance: DIPHENHYDRAMINE
     Indication: Premedication
     Dosage: 50 MILLIGRAM
     Route: 048
     Dates: start: 20230310, end: 20231026
  5. FAMOTIDINE [Concomitant]
     Active Substance: FAMOTIDINE
     Indication: Premedication
     Dosage: 40 MILLIGRAM
     Route: 048
     Dates: start: 20230310, end: 20231026
  6. DEXAMETHASONE [Concomitant]
     Active Substance: DEXAMETHASONE
     Indication: Premedication
     Dosage: 10 MILLIGRAM
     Route: 042
     Dates: start: 20230310, end: 20231026

REACTIONS (4)
  - Therapeutic product ineffective [Not Recovered/Not Resolved]
  - Paraesthesia [Not Recovered/Not Resolved]
  - Disease progression [Unknown]
  - Insomnia [Unknown]

NARRATIVE: CASE EVENT DATE: 20230101
